FAERS Safety Report 20303216 (Version 5)
Quarter: 2023Q1

REPORT INFORMATION
  Report Type: Spontaneous
  Country: US (occurrence: US)
  Receive Date: 20220106
  Receipt Date: 20230103
  Transmission Date: 20230418
  Serious: No
  Sender: FDA-Public Use
  Company Number: US-PFIZER INC-202101741836

PATIENT
  Age: 14 Year
  Sex: Male
  Weight: 34.47 kg

DRUGS (1)
  1. GENOTROPIN [Suspect]
     Active Substance: SOMATROPIN
     Indication: Short stature
     Dosage: 1.6 MG, 1X/DAY

REACTIONS (5)
  - Drug dose omission by device [Unknown]
  - Incorrect dose administered by device [Unknown]
  - Device leakage [Unknown]
  - Device mechanical issue [Unknown]
  - Device breakage [Unknown]
